FAERS Safety Report 6252029-9 (Version None)
Quarter: 2009Q2

REPORT INFORMATION
  Report Type: 
  Country: None (occurrence: None)
  Receive Date: 20090630
  Receipt Date: 20060711
  Transmission Date: 20091009
  Serious: Yes (Hospitalization)
  Sender: FDA-Public Use
  Company Number: US-ROCHE-638693

PATIENT
  Sex: Male

DRUGS (5)
  1. ENFUVIRTIDE [Suspect]
     Route: 065
     Dates: start: 20050218, end: 20060801
  2. COMBIVIR [Concomitant]
     Dates: start: 20050218, end: 20051205
  3. LEXIVA [Concomitant]
     Dates: start: 20050218, end: 20051205
  4. EMTRIVA [Concomitant]
     Dosage: FREQUENCY: QD
     Dates: start: 20051205, end: 20061001
  5. VIRAMUNE [Concomitant]
     Dates: start: 20051205, end: 20061001

REACTIONS (2)
  - DERMATITIS CONTACT [None]
  - DYSPNOEA [None]
